FAERS Safety Report 14537325 (Version 2)
Quarter: 2018Q1

REPORT INFORMATION
  Report Type: Spontaneous
  Country: JP (occurrence: JP)
  Receive Date: 20180215
  Receipt Date: 20180316
  Transmission Date: 20180509
  Serious: Yes (Hospitalization)
  Sender: FDA-Public Use
  Company Number: JP-SHIRE-JP201805877

PATIENT

DRUGS (5)
  1. INTUNIV [Suspect]
     Active Substance: GUANFACINE HYDROCHLORIDE
     Dosage: 1 MG, UNK
     Route: 048
  2. ABILIFY [Concomitant]
     Active Substance: ARIPIPRAZOLE
  3. INTUNIV [Suspect]
     Active Substance: GUANFACINE HYDROCHLORIDE
     Dosage: 2 MG, UNK
     Route: 048
     Dates: start: 20170710
  4. INTUNIV [Suspect]
     Active Substance: GUANFACINE HYDROCHLORIDE
     Indication: PRODUCT USED FOR UNKNOWN INDICATION
     Dosage: 3 MG, 1X/DAY:QD
     Route: 048
  5. INTUNIV [Suspect]
     Active Substance: GUANFACINE HYDROCHLORIDE
     Dosage: 9 MG, UNK
     Route: 048
     Dates: start: 20180204

REACTIONS (5)
  - Accidental overdose [Unknown]
  - Nausea [Unknown]
  - Electrocardiogram abnormal [Unknown]
  - Medication error [Unknown]
  - Adverse reaction [Unknown]

NARRATIVE: CASE EVENT DATE: 20180204
